FAERS Safety Report 8963697 (Version 1)
Quarter: 2012Q4

REPORT INFORMATION
  Report Type: 
  Country: JP (occurrence: JP)
  Receive Date: 20121214
  Receipt Date: 20121214
  Transmission Date: 20130627
  Serious: Yes (Hospitalization)
  Sender: FDA-Public Use
  Company Number: JP-009507513-1212JPN005430

PATIENT
  Age: 50 Year
  Sex: Male

DRUGS (3)
  1. JANUVIA TABLETS 100MG [Suspect]
     Dosage: 100 mg, qd
     Route: 048
  2. SEIBULE [Suspect]
     Dosage: 50 mg, Dose interval and frequency unknown
     Route: 048
  3. AMARYL [Concomitant]
     Dosage: 0.5 mg, divided dose frequency unknown
     Route: 048

REACTIONS (1)
  - Ileus [Recovered/Resolved]
